FAERS Safety Report 13638724 (Version 2)
Quarter: 2017Q2

REPORT INFORMATION
  Report Type: Spontaneous
  Country: FR (occurrence: FR)
  Receive Date: 20170609
  Receipt Date: 20170627
  Transmission Date: 20170830
  Serious: Yes (Other)
  Sender: FDA-Public Use
  Company Number: FR-BAYER-2017-110437

PATIENT
  Age: 27 Year
  Sex: Female

DRUGS (1)
  1. MIRENA [Suspect]
     Active Substance: LEVONORGESTREL
     Indication: CONTRACEPTION
     Dosage: 20 MCG/24HR, CONT
     Route: 015
     Dates: start: 20160315, end: 20160719

REACTIONS (16)
  - Pain [Recovered/Resolved]
  - Vulvovaginal mycotic infection [Recovered/Resolved]
  - Abortion spontaneous [Recovered/Resolved]
  - Urinary tract infection [Recovered/Resolved]
  - Dyspareunia [Recovered/Resolved]
  - Pregnancy with contraceptive device [Recovered/Resolved]
  - Ovarian cyst [Not Recovered/Not Resolved]
  - Pyelonephritis [Recovered/Resolved]
  - Abdominal pain [Recovered/Resolved]
  - Polymenorrhoea [Recovered/Resolved]
  - Loss of libido [Recovered/Resolved]
  - Amnesia [Recovered/Resolved]
  - Hypertrichosis [Recovered/Resolved]
  - Renal colic [Recovered/Resolved]
  - Speech disorder [Recovered/Resolved]
  - Migraine [Recovered/Resolved]

NARRATIVE: CASE EVENT DATE: 2016
